FAERS Safety Report 21934997 (Version 1)
Quarter: 2023Q1

REPORT INFORMATION
  Report Type: Spontaneous
  Country: JP (occurrence: JP)
  Receive Date: 20230201
  Receipt Date: 20230201
  Transmission Date: 20230418
  Serious: Yes (Hospitalization)
  Sender: FDA-Public Use
  Company Number: JP-KERYX BIOPHARMACEUTICALS INC.-JP-AKEB-23-000215

PATIENT

DRUGS (6)
  1. FERRIC CITRATE ANHYDROUS [Suspect]
     Active Substance: FERRIC CITRATE ANHYDROUS
     Indication: Hyperphosphataemia
     Dosage: 1500 MILLIGRAM, QD
     Route: 048
     Dates: start: 20221011, end: 20221013
  2. FERRIC CITRATE ANHYDROUS [Suspect]
     Active Substance: FERRIC CITRATE ANHYDROUS
     Dosage: 3000 MILLIGRAM, QD
     Route: 048
     Dates: start: 20221014, end: 20221018
  3. FUTIBATINIB [Suspect]
     Active Substance: FUTIBATINIB
     Indication: Oesophageal carcinoma
     Dosage: 20 MILLIGRAM, QD
     Route: 048
     Dates: start: 20221007, end: 20221010
  4. FUTIBATINIB [Suspect]
     Active Substance: FUTIBATINIB
     Dosage: 16 MILLIGRAM, QD
     Route: 048
     Dates: start: 20221011, end: 20221024
  5. FUTIBATINIB [Suspect]
     Active Substance: FUTIBATINIB
     Dosage: 12 MILLIGRAM, QD
     Route: 048
     Dates: start: 20221025
  6. PEMBROLIZUMAB [Suspect]
     Active Substance: PEMBROLIZUMAB
     Indication: Oesophageal carcinoma
     Dosage: 200 MILLIGRAM, 3W
     Route: 042
     Dates: start: 20221007

REACTIONS (2)
  - Decreased appetite [Recovered/Resolved]
  - Delirium [Recovered/Resolved]

NARRATIVE: CASE EVENT DATE: 20221018
